FAERS Safety Report 4734094-0 (Version None)
Quarter: 2005Q3

REPORT INFORMATION
  Report Type: 
  Country: None (occurrence: None)
  Receive Date: 20050803
  Receipt Date: 20050803
  Transmission Date: 20060218
  Serious: Yes (Hospitalization)
  Sender: FDA-Public Use
  Company Number: None

PATIENT
  Age: 68 Year
  Sex: Female
  Weight: 43.5453 kg

DRUGS (8)
  1. AVASTIN [Suspect]
     Indication: CHEMOTHERAPY
     Dosage: 10 MG/KG D1,15 Q 28 D INTRAVENOUS
     Route: 042
     Dates: start: 20050603, end: 20050715
  2. AVASTIN [Suspect]
     Indication: PANCREATIC CARCINOMA
     Dosage: 10 MG/KG D1,15 Q 28 D INTRAVENOUS
     Route: 042
     Dates: start: 20050603, end: 20050715
  3. FENTANYL [Concomitant]
  4. OXYCODONE [Concomitant]
  5. PANCREASE [Concomitant]
  6. LIPRAM [Concomitant]
  7. FUROSEMIDE [Concomitant]
  8. ZOFRAN [Concomitant]

REACTIONS (14)
  - ASCITES [None]
  - BLOOD PRESSURE SYSTOLIC INCREASED [None]
  - DISEASE PROGRESSION [None]
  - EFFUSION [None]
  - ELECTROCARDIOGRAM Q WAVES [None]
  - ELECTROCARDIOGRAM T WAVE ABNORMAL [None]
  - ELECTROLYTE IMBALANCE [None]
  - INTERVERTEBRAL DISC DISORDER [None]
  - LUNG CONSOLIDATION [None]
  - LUNG INFILTRATION [None]
  - LYMPHADENOPATHY [None]
  - METASTASES TO LIVER [None]
  - PULMONARY EMBOLISM [None]
  - VENOUS THROMBOSIS [None]
